FAERS Safety Report 15428256 (Version 1)
Quarter: 2018Q3

REPORT INFORMATION
  Report Type: Spontaneous
  Country: US (occurrence: US)
  Receive Date: 20180926
  Receipt Date: 20180926
  Transmission Date: 20181010
  Serious: No
  Sender: FDA-Public Use
  Company Number: US-ZYDUS-019166

PATIENT
  Age: 71 Year
  Sex: Female

DRUGS (3)
  1. LEVOTHYROXINE. [Concomitant]
     Active Substance: LEVOTHYROXINE
     Indication: PRODUCT USED FOR UNKNOWN INDICATION
  2. BUPROPION. [Concomitant]
     Active Substance: BUPROPION
     Indication: PRODUCT USED FOR UNKNOWN INDICATION
  3. POTASSIUM CITRATE. [Suspect]
     Active Substance: POTASSIUM CITRATE
     Indication: RENAL LITHIASIS PROPHYLAXIS
     Route: 048
     Dates: start: 20170816, end: 20180527

REACTIONS (8)
  - Urinary tract infection [Not Recovered/Not Resolved]
  - Drug ineffective [Recovered/Resolved]
  - Micturition urgency [Not Recovered/Not Resolved]
  - Cystitis interstitial [Recovered/Resolved]
  - Pain [Recovered/Resolved]
  - Bladder discomfort [Not Recovered/Not Resolved]
  - Insomnia [Recovered/Resolved]
  - Pollakiuria [Not Recovered/Not Resolved]

NARRATIVE: CASE EVENT DATE: 20180208
